FAERS Safety Report 9350338 (Version 1)
Quarter: 2013Q2

REPORT INFORMATION
  Report Type: Spontaneous
  Country: US (occurrence: US)
  Receive Date: 20130617
  Receipt Date: 20130617
  Transmission Date: 20140414
  Serious: No
  Sender: FDA-Public Use
  Company Number: US-ASTRAZENECA-2013SE41606

PATIENT
  Sex: Female

DRUGS (4)
  1. CRESTOR [Suspect]
     Indication: BLOOD CHOLESTEROL INCREASED
     Route: 048
  2. PROVENTIL INHALER [Concomitant]
  3. TOVAIR [Concomitant]
  4. UNSPECIFIED NASAL SPRAY [Concomitant]

REACTIONS (2)
  - Asthma [Unknown]
  - Intentional drug misuse [Unknown]
